FAERS Safety Report 4294373-0 (Version None)
Quarter: 2004Q1

REPORT INFORMATION
  Report Type: 
  Country: None (occurrence: None)
  Receive Date: 20040211
  Receipt Date: 20031104
  Transmission Date: 20041129
  Serious: Yes (Hospitalization)
  Sender: FDA-Public Use
  Company Number: AU-BRISTOL-MYERS SQUIBB COMPANY-12427068

PATIENT
  Age: 61 Year
  Sex: Male

DRUGS (3)
  1. ATAZANAVIR [Suspect]
     Indication: HIV INFECTION
     Route: 048
     Dates: start: 20030319
  2. ENFUVIRTIDE [Concomitant]
     Route: 058
     Dates: start: 20030212
  3. TENOFOVIR [Concomitant]
     Dates: start: 20021010

REACTIONS (1)
  - VASCULAR OCCLUSION [None]
